FAERS Safety Report 7968683-7 (Version None)
Quarter: 2011Q4

REPORT INFORMATION
  Report Type: 
  Country: None (occurrence: None)
  Receive Date: 20111209
  Receipt Date: 20111202
  Transmission Date: 20120403
  Serious: Yes (Hospitalization)
  Sender: FDA-Public Use
  Company Number: IT-GLAXOSMITHKLINE-B0768187A

PATIENT
  Sex: Male

DRUGS (7)
  1. COUMADIN [Concomitant]
     Indication: ATRIAL FIBRILLATION
     Dosage: 5MG PER DAY
     Route: 048
     Dates: start: 20090101, end: 20111022
  2. LANOXIN [Suspect]
     Indication: ATRIAL FIBRILLATION
     Dosage: .125MG PER DAY
     Route: 048
     Dates: start: 20090101, end: 20111022
  3. GLIMEPIRIDE [Concomitant]
     Indication: TYPE 2 DIABETES MELLITUS
     Dates: start: 20090101, end: 20111022
  4. AMIODARONE HCL [Concomitant]
     Indication: ATRIAL FIBRILLATION
     Dosage: 200MG PER DAY
     Route: 048
     Dates: start: 20090101, end: 20111022
  5. CAPTOPRIL [Concomitant]
     Indication: CONGESTIVE CARDIOMYOPATHY
     Dates: start: 20090101, end: 20111022
  6. CARVEDILOL [Concomitant]
     Indication: CONGESTIVE CARDIOMYOPATHY
     Dates: start: 20090101, end: 20111022
  7. FUROSEMIDE [Concomitant]
     Indication: CONGESTIVE CARDIOMYOPATHY
     Dates: start: 20090101, end: 20111022

REACTIONS (4)
  - ASTHENIA [None]
  - APRAXIA [None]
  - TOXICITY TO VARIOUS AGENTS [None]
  - NAUSEA [None]
